FAERS Safety Report 4737953-8 (Version None)
Quarter: 2005Q3

REPORT INFORMATION
  Report Type: 
  Country: None (occurrence: None)
  Receive Date: 20050805
  Receipt Date: 20050726
  Transmission Date: 20060218
  Serious: Yes (Death)
  Sender: FDA-Public Use
  Company Number: B0388641A

PATIENT
  Age: 40 Year
  Sex: Male

DRUGS (4)
  1. EPIVIR [Suspect]
     Indication: HIV INFECTION
     Dates: start: 20030501
  2. STAVUDINE [Suspect]
     Indication: HIV INFECTION
     Dates: start: 20030501
  3. LOPINAVIR + RITONAVIR (LOPINAVIR + RITONAVIR) [Suspect]
     Indication: HIV INFECTION
     Dates: start: 20030501
  4. CO-TRIMOXAZOLE [Concomitant]

REACTIONS (9)
  - ASPERGILLOSIS [None]
  - CONVULSION [None]
  - DRUG INEFFECTIVE [None]
  - DYSPHASIA [None]
  - HERPES ZOSTER [None]
  - IMMUNE RECONSTITUTION SYNDROME [None]
  - NODULE [None]
  - PYREXIA [None]
  - RESPIRATORY TRACT INFECTION FUNGAL [None]
